FAERS Safety Report 14092265 (Version 1)
Quarter: 2017Q4

REPORT INFORMATION
  Report Type: Spontaneous
  Country: US (occurrence: US)
  Receive Date: 20171014
  Receipt Date: 20171014
  Transmission Date: 20180321
  Serious: Yes (Other)
  Sender: FDA-Public Use
  Company Number: None

PATIENT
  Age: 14 Year
  Sex: Female
  Weight: 59.85 kg

DRUGS (1)
  1. DOXYCYCLINE HYC [Suspect]
     Active Substance: DOXYCYCLINE HYCLATE
     Indication: ACNE
     Dosage: ?          QUANTITY:30 CAPSULE(S);?
     Route: 048
     Dates: start: 20171004, end: 20171011

REACTIONS (5)
  - Headache [None]
  - Influenza like illness [None]
  - Pain [None]
  - Oropharyngeal pain [None]
  - Vision blurred [None]

NARRATIVE: CASE EVENT DATE: 20171006
